FAERS Safety Report 9686761 (Version 1)
Quarter: 2013Q4

REPORT INFORMATION
  Report Type: Spontaneous
  Country: JP (occurrence: JP)
  Receive Date: 20131113
  Receipt Date: 20131113
  Transmission Date: 20140711
  Serious: Yes (Other)
  Sender: FDA-Public Use
  Company Number: JP-BRISTOL-MYERS SQUIBB COMPANY-19808450

PATIENT
  Age: 68 Year
  Sex: Male

DRUGS (1)
  1. METGLUCO [Suspect]
     Route: 048
     Dates: start: 201111, end: 201201

REACTIONS (1)
  - Drug-induced liver injury [Unknown]
